FAERS Safety Report 12491846 (Version 1)
Quarter: 2016Q2

REPORT INFORMATION
  Report Type: Spontaneous
  Country: US (occurrence: None)
  Receive Date: 20160622
  Receipt Date: 20160622
  Transmission Date: 20160815
  Serious: Yes (Disabling, Other)
  Sender: FDA-Public Use
  Company Number: None

PATIENT
  Age: 55 Year
  Sex: Female
  Weight: 81.65 kg

DRUGS (1)
  1. METFORMIN ER 500 MG TAB - GENERIC FOR GLUCOPHAGE XR 500 MG TAB [Suspect]
     Active Substance: METFORMIN HYDROCHLORIDE
     Indication: TYPE 2 DIABETES MELLITUS
     Dosage: 2 PILLS - BREAKFAST?2 PILLS - DINNER
     Route: 048
     Dates: start: 201508

REACTIONS (2)
  - Coordination abnormal [None]
  - Dizziness [None]

NARRATIVE: CASE EVENT DATE: 201508
